FAERS Safety Report 12996960 (Version 19)
Quarter: 2017Q4

REPORT INFORMATION
  Report Type: Report from Study
  Country: US (occurrence: US)
  Receive Date: 20161205
  Receipt Date: 20171103
  Transmission Date: 20180320
  Serious: Yes (Hospitalization, Other)
  Sender: FDA-Public Use
  Company Number: US-ACTELION-A-NJ2016-141240

PATIENT
  Age: 46 Year
  Sex: Female
  Weight: 116.55 kg

DRUGS (16)
  1. UPTRAVI [Suspect]
     Active Substance: SELEXIPAG
     Dosage: 200 MCG, BID
     Route: 048
     Dates: start: 20160808, end: 201703
  2. UPTRAVI [Suspect]
     Active Substance: SELEXIPAG
     Dosage: 1400 MCG, BID
     Route: 048
     Dates: start: 20170201, end: 201703
  3. UPTRAVI [Suspect]
     Active Substance: SELEXIPAG
     Indication: PULMONARY ARTERIAL HYPERTENSION
     Dosage: 1600 MCG, BID
     Route: 048
     Dates: end: 201703
  4. BENADRYL [Concomitant]
     Active Substance: DIPHENHYDRAMINE HYDROCHLORIDE
  5. ULORIC [Concomitant]
     Active Substance: FEBUXOSTAT
  6. ALDACTONE [Concomitant]
     Active Substance: SPIRONOLACTONE
  7. UPTRAVI [Suspect]
     Active Substance: SELEXIPAG
     Dosage: 800 MCG, BID
     Route: 048
  8. UPTRAVI [Suspect]
     Active Substance: SELEXIPAG
     Dosage: 1000 MCG, BID
     Route: 048
     Dates: end: 20170201
  9. LETAIRIS [Suspect]
     Active Substance: AMBRISENTAN
     Dosage: 10 MG, QD
     Route: 065
     Dates: start: 20170322
  10. DIGOXIN. [Concomitant]
     Active Substance: DIGOXIN
  11. LETAIRIS [Suspect]
     Active Substance: AMBRISENTAN
     Indication: PRODUCT USED FOR UNKNOWN INDICATION
     Dosage: 5 MG, QD
     Route: 065
  12. TYVASO [Suspect]
     Active Substance: TREPROSTINIL
     Indication: PULMONARY ARTERIAL HYPERTENSION
     Dosage: 72 MCG, QID
     Route: 055
     Dates: start: 20160203, end: 201608
  13. DEMADEX [Concomitant]
     Active Substance: TORSEMIDE
  14. ADCIRCA [Concomitant]
     Active Substance: TADALAFIL
  15. FLOVENT [Concomitant]
     Active Substance: FLUTICASONE PROPIONATE
  16. KLOR-CON [Concomitant]
     Active Substance: POTASSIUM CHLORIDE

REACTIONS (25)
  - Ear infection [Unknown]
  - Oedema [Unknown]
  - Dyspnoea [Not Recovered/Not Resolved]
  - Product use issue [Unknown]
  - Pain in jaw [Unknown]
  - Myalgia [Unknown]
  - Hypokalaemia [Unknown]
  - Dehydration [Unknown]
  - Hypotension [Unknown]
  - Gastrooesophageal reflux disease [Unknown]
  - Constipation [Unknown]
  - Headache [Unknown]
  - Dizziness [Unknown]
  - Weight decreased [Unknown]
  - Nasopharyngitis [Unknown]
  - Muscle tightness [Unknown]
  - Pain [Not Recovered/Not Resolved]
  - Diarrhoea [Not Recovered/Not Resolved]
  - Feeling abnormal [Unknown]
  - Cough [Unknown]
  - Respiratory tract infection [Unknown]
  - Fluid retention [Unknown]
  - Abdominal pain upper [Unknown]
  - Nausea [Unknown]
  - Pain in extremity [Unknown]
